FAERS Safety Report 7632028-2 (Version None)
Quarter: 2011Q3

REPORT INFORMATION
  Report Type: 
  Country: None (occurrence: None)
  Receive Date: 20110725
  Receipt Date: 20100812
  Transmission Date: 20111222
  Serious: No
  Sender: FDA-Public Use
  Company Number: US-BRISTOL-MYERS SQUIBB COMPANY-15114101

PATIENT
  Age: 78 Year
  Sex: Male
  Weight: 82 kg

DRUGS (4)
  1. COUMADIN [Suspect]
     Indication: PULMONARY THROMBOSIS
     Dosage: DOSE INCREASED FROM 5TO6MG + THEN INTERRUPTED + RESTARTED. NEW REFILL ON 18MAY10.
     Route: 048
     Dates: start: 20091202
  2. NEXIUM [Concomitant]
  3. PROVENTIL GENTLEHALER [Concomitant]
  4. NIFEDIPINE [Concomitant]

REACTIONS (5)
  - CHEST PAIN [None]
  - DIZZINESS [None]
  - ASTHENIA [None]
  - DYSPEPSIA [None]
  - SYNCOPE [None]
